FAERS Safety Report 5965941-2 (Version None)
Quarter: 2008Q4

REPORT INFORMATION
  Report Type: 
  Country: None (occurrence: None)
  Receive Date: 20081119
  Receipt Date: 20080806
  Transmission Date: 20090506
  Serious: No
  Sender: FDA-Public Use
  Company Number: WAES 0808USA01118

PATIENT
  Age: 79 Year
  Sex: Male

DRUGS (3)
  1. JANUVIA [Suspect]
     Indication: DIABETES MELLITUS
     Dosage: 50 MG/DAILY/PO
     Route: 048
  2. LANTUS [Concomitant]
  3. CORTISONE ACETATE TAB [Concomitant]

REACTIONS (3)
  - BLOOD GLUCOSE INCREASED [None]
  - OEDEMA PERIPHERAL [None]
  - WEIGHT INCREASED [None]
